FAERS Safety Report 6340046-X (Version None)
Quarter: 2009Q3

REPORT INFORMATION
  Report Type: 
  Country: None (occurrence: None)
  Receive Date: 20090903
  Receipt Date: 20090824
  Transmission Date: 20100115
  Serious: Yes (Other)
  Sender: FDA-Public Use
  Company Number: US-BAXTER-2009BH011458

PATIENT
  Sex: Male

DRUGS (1)
  1. HEPARIN SODIUM INJECTION [Suspect]
     Indication: DRUG EXPOSURE DURING PREGNANCY
     Route: 064
     Dates: start: 20070731, end: 20080301

REACTIONS (13)
  - ADRENAL HAEMORRHAGE [None]
  - CALCINOSIS [None]
  - DEVELOPMENTAL DELAY [None]
  - DRUG EXPOSURE DURING PREGNANCY [None]
  - HEART RATE DECREASED [None]
  - HYPERHIDROSIS [None]
  - HYPERSENSITIVITY [None]
  - HYPOTHYROIDISM [None]
  - JAUNDICE [None]
  - NEPHROCALCINOSIS [None]
  - PREMATURE BABY [None]
  - RENAL IMPAIRMENT [None]
  - THYROID DISORDER [None]
